FAERS Safety Report 5386913-5 (Version None)
Quarter: 2007Q3

REPORT INFORMATION
  Report Type: 
  Country: None (occurrence: None)
  Receive Date: 20070713
  Receipt Date: 20070703
  Transmission Date: 20080115
  Serious: Yes (Other)
  Sender: FDA-Public Use
  Company Number: JP-PFIZER INC-2007049687

PATIENT
  Sex: Male
  Weight: 49 kg

DRUGS (2)
  1. ZOLOFT [Suspect]
     Indication: DEPRESSION
     Dosage: DAILY DOSE:50MG
     Route: 048
  2. PAXIL [Suspect]
     Indication: DEPRESSION
     Dosage: DAILY DOSE:10MG
     Route: 048

REACTIONS (7)
  - ANXIETY [None]
  - DELUSION [None]
  - DEPRESSED MOOD [None]
  - DRUG INEFFECTIVE [None]
  - PERSECUTORY DELUSION [None]
  - STOMACH DISCOMFORT [None]
  - THOUGHT BLOCKING [None]
